FAERS Safety Report 15175581 (Version 3)
Quarter: 2018Q3

REPORT INFORMATION
  Report Type: Spontaneous
  Country: MX (occurrence: MX)
  Receive Date: 20180720
  Receipt Date: 20180802
  Transmission Date: 20181010
  Serious: Yes (Hospitalization, Other)
  Sender: FDA-Public Use
  Company Number: MX-SHIRE-MX201825658

PATIENT

DRUGS (1)
  1. KIOVIG [Suspect]
     Active Substance: HUMAN IMMUNOGLOBULIN G
     Indication: IMMUNODEFICIENCY COMMON VARIABLE
     Route: 065

REACTIONS (7)
  - Pruritus [Unknown]
  - Malaise [Unknown]
  - Chills [Unknown]
  - Tremor [Unknown]
  - Serratia infection [Unknown]
  - Hypertension [Unknown]
  - Body temperature increased [Unknown]
